FAERS Safety Report 8377644-8 (Version None)
Quarter: 2012Q2

REPORT INFORMATION
  Report Type: 
  Country: None (occurrence: None)
  Receive Date: 20120522
  Receipt Date: 20120508
  Transmission Date: 20120825
  Serious: Yes (Other)
  Sender: FDA-Public Use
  Company Number: TN-WATSON-2012-08144

PATIENT
  Age: 32 Year
  Sex: Female

DRUGS (1)
  1. CIPROFLOXACIN HCL [Suspect]
     Indication: PYELONEPHRITIS ACUTE
     Dosage: 1000 MG, DAILY
     Route: 065

REACTIONS (2)
  - RHABDOMYOLYSIS [None]
  - TUBULOINTERSTITIAL NEPHRITIS [None]
